FAERS Safety Report 5752583-7 (Version None)
Quarter: 2008Q2

REPORT INFORMATION
  Report Type: 
  Country: None (occurrence: None)
  Receive Date: 20080527
  Receipt Date: 20080527
  Transmission Date: 20081010
  Serious: Yes (Hospitalization)
  Sender: FDA-Public Use
  Company Number: None

PATIENT
  Age: 65 Year
  Sex: Male
  Weight: 93 kg

DRUGS (5)
  1. PANITUMUMAB (3.6 MG/KG) QOW FOR 3 DOSES [Suspect]
     Indication: OESOPHAGEAL CARCINOMA
     Dosage: PANITUMUMAB 349 MG IV;  PANITUMUMAB 348 MG IV
     Route: 042
     Dates: start: 20080129
  2. PANITUMUMAB (3.6 MG/KG) QOW FOR 3 DOSES [Suspect]
     Indication: OESOPHAGEAL CARCINOMA
     Dosage: PANITUMUMAB 349 MG IV;  PANITUMUMAB 348 MG IV
     Route: 042
     Dates: start: 20080212
  3. PANITUMUMAB (3.6 MG/KG) QOW FOR 3 DOSES [Suspect]
     Indication: OESOPHAGEAL CARCINOMA
     Dosage: PANITUMUMAB 349 MG IV;  PANITUMUMAB 348 MG IV
     Route: 042
     Dates: start: 20080226
  4. OXALIPLATIN [Concomitant]
  5. XELODA [Concomitant]

REACTIONS (5)
  - EMPYEMA [None]
  - GASTROINTESTINAL ANASTOMOTIC LEAK [None]
  - PLEURAL EFFUSION [None]
  - POST PROCEDURAL COMPLICATION [None]
  - RESPIRATORY FAILURE [None]
